FAERS Safety Report 23269149 (Version 2)
Quarter: 2024Q1

REPORT INFORMATION
  Report Type: Spontaneous
  Country: US (occurrence: US)
  Receive Date: 20231206
  Receipt Date: 20240116
  Transmission Date: 20240410
  Serious: No
  Sender: FDA-Public Use
  Company Number: US-JNJFOC-20231151361

PATIENT
  Sex: Female

DRUGS (1)
  1. WOMENS ROGAINE [Interacting]
     Active Substance: MINOXIDIL
     Indication: Alopecia
     Dosage: AS PER INSTRUCTION
     Route: 061
     Dates: start: 202310

REACTIONS (3)
  - Application site rash [Recovered/Resolved]
  - Drug interaction [Unknown]
  - Inappropriate schedule of product administration [Unknown]

NARRATIVE: CASE EVENT DATE: 20230101
